FAERS Safety Report 4519508-3 (Version None)
Quarter: 2005Q1

REPORT INFORMATION
  Report Type: 
  Country: None (occurrence: None)
  Receive Date: 20041101
  Receipt Date: 20040806
  Transmission Date: 20050727
  Serious: Yes (Other)
  Sender: FDA-Public Use
  Company Number: HQWYE195311AUG04

PATIENT
  Age: 50 Year
  Sex: Female
  Weight: 76.27 kg

DRUGS (5)
  1. PREMARIN [Suspect]
     Indication: OESTROGEN REPLACEMENT THERAPY
     Dosage: SEE IMAGE, ORAL
     Route: 048
     Dates: start: 19870101, end: 20040301
  2. PREMARIN [Suspect]
     Indication: OESTROGEN REPLACEMENT THERAPY
     Dosage: SEE IMAGE, ORAL
     Route: 048
     Dates: start: 20040301, end: 20040801
  3. PREMARIN [Suspect]
     Indication: OESTROGEN REPLACEMENT THERAPY
     Dosage: SEE IMAGE, ORAL
     Route: 048
     Dates: start: 20040801
  4. MULTIVITAMINS (ASCORBIC ACID/ERGOCALCIFEROL/FOLIC ACID/NICOTINAMIDE/PA [Concomitant]
  5. SYNTHROID [Concomitant]

REACTIONS (3)
  - CRYING [None]
  - DRUG EFFECT DECREASED [None]
  - INSOMNIA [None]
